FAERS Safety Report 8908796 (Version 3)
Quarter: 2013Q1

REPORT INFORMATION
  Report Type: Report from Study
  Country: CA (occurrence: CA)
  Receive Date: 20121114
  Receipt Date: 20130111
  Transmission Date: 20140127
  Serious: Yes (Other)
  Sender: FDA-Public Use
  Company Number: CA-ROCHE-1153524

PATIENT
  Sex: Female
  Weight: 60.3 kg

DRUGS (12)
  1. RITUXIMAB [Suspect]
     Indication: RHEUMATOID ARTHRITIS
     Dosage: DAY 1 AND  DAY 15
     Route: 042
     Dates: start: 20100118, end: 20121213
  2. PLAVIX [Concomitant]
  3. EZETROL [Concomitant]
  4. TYLENOL ARTHRITIS [Concomitant]
  5. FUROSEMIDE [Concomitant]
  6. VITAMIN B12 [Concomitant]
  7. PANTOPRAZOLE [Concomitant]
  8. PREDNISONE [Concomitant]
  9. ACLASTA [Concomitant]
  10. DIPHENHYDRAMINE HCL [Concomitant]
     Route: 048
     Dates: start: 20100118, end: 20121213
  11. ACETAMINOPHEN [Concomitant]
     Route: 048
     Dates: start: 20100118, end: 20121213
  12. METHYLPREDNISOLONE [Concomitant]
     Route: 042
     Dates: start: 20100118, end: 20121213

REACTIONS (3)
  - Intervertebral disc disorder [Not Recovered/Not Resolved]
  - Drug ineffective [Unknown]
  - Vasculitis cerebral [Unknown]
